FAERS Safety Report 5594392-8 (Version None)
Quarter: 2008Q1

REPORT INFORMATION
  Report Type: 
  Country: None (occurrence: None)
  Receive Date: 20080115
  Receipt Date: 20080115
  Transmission Date: 20080703
  Serious: No
  Sender: FDA-Public Use
  Company Number: None

PATIENT
  Age: 57 Year
  Sex: Female
  Weight: 79.3795 kg

DRUGS (2)
  1. DELSYM [Suspect]
     Indication: COUGH
     Dosage: 2 TSP   EVERY 12 HOURS  PO
     Route: 048
     Dates: start: 20071221, end: 20071222
  2. DELSYM [Suspect]
     Indication: NASOPHARYNGITIS
     Dosage: 2 TSP   EVERY 12 HOURS  PO
     Route: 048
     Dates: start: 20071221, end: 20071222

REACTIONS (5)
  - EYE SWELLING [None]
  - PHARMACEUTICAL PRODUCT COMPLAINT [None]
  - PRURITUS [None]
  - SKIN HAEMORRHAGE [None]
  - URTICARIA [None]
